FAERS Safety Report 8906671 (Version 6)
Quarter: 2014Q4

REPORT INFORMATION
  Report Type: Spontaneous
  Country: US (occurrence: US)
  Receive Date: 20121114
  Receipt Date: 20141124
  Transmission Date: 20150529
  Serious: No
  Sender: FDA-Public Use
  Company Number: US-ELI_LILLY_AND_COMPANY-US201211001353

PATIENT
  Sex: Female
  Weight: 79.8 kg

DRUGS (17)
  1. FLUOXETINE [Concomitant]
     Active Substance: FLUOXETINE\FLUOXETINE HYDROCHLORIDE
     Dosage: 20 MG, TID
  2. LISINOPRIL. [Suspect]
     Active Substance: LISINOPRIL
     Dosage: 1 DF, UNKNOWN
  3. ACTOS [Concomitant]
     Active Substance: PIOGLITAZONE HYDROCHLORIDE
     Indication: DIABETES MELLITUS
     Dosage: 15 MG, QD
     Route: 048
  4. ZYPREXA ZYDIS [Suspect]
     Active Substance: OLANZAPINE
     Indication: BIPOLAR DISORDER
     Dosage: 10 MG, QD
     Dates: start: 201201
  5. TRAZODONE [Concomitant]
     Active Substance: TRAZODONE HYDROCHLORIDE
     Indication: BIPOLAR DISORDER
     Dosage: 300 MG, UNKNOWN
  6. MULTIVITAMIN [Concomitant]
     Active Substance: VITAMINS
  7. ZYPREXA [Suspect]
     Active Substance: OLANZAPINE
     Dosage: 5 MG, QD
  8. ZYPREXA [Suspect]
     Active Substance: OLANZAPINE
     Dosage: 15 MG, QD
  9. ZYPREXA [Suspect]
     Active Substance: OLANZAPINE
     Dosage: 1 DF, UNK
  10. OLANZAPINE. [Suspect]
     Active Substance: OLANZAPINE
     Dosage: 1 DF, UNKNOWN
     Route: 048
     Dates: start: 20111230
  11. CLONAZEPAM. [Concomitant]
     Active Substance: CLONAZEPAM
     Indication: BIPOLAR DISORDER
     Dosage: 3 MG, UNKNOWN
  12. ZYPREXA [Suspect]
     Active Substance: OLANZAPINE
     Indication: BIPOLAR DISORDER
     Dosage: 10 MG, QD
     Dates: start: 2000
  13. ZYPREXA ZYDIS [Suspect]
     Active Substance: OLANZAPINE
     Dosage: 5 MG, QD
     Route: 048
  14. LITHIUM [Concomitant]
     Active Substance: LITHIUM CARBONATE
     Dosage: 1 DF, UNKNOWN
  15. METFORMIN [Concomitant]
     Active Substance: METFORMIN HYDROCHLORIDE
  16. FENOFIBRAT [Concomitant]
     Active Substance: FENOFIBRATE
  17. GLIPIZIDE. [Concomitant]
     Active Substance: GLIPIZIDE

REACTIONS (9)
  - Blood glucose decreased [Unknown]
  - Headache [Unknown]
  - Fatigue [Unknown]
  - Constipation [Recovered/Resolved]
  - Blood glucose increased [Unknown]
  - Gingivitis [Unknown]
  - Renal cyst [Unknown]
  - Depressed mood [Unknown]
  - Weight decreased [Unknown]
